FAERS Safety Report 24951156 (Version 3)
Quarter: 2025Q3

REPORT INFORMATION
  Report Type: Report from Study
  Country: US (occurrence: US)
  Receive Date: 20250210
  Receipt Date: 20250809
  Transmission Date: 20251020
  Serious: Yes (Other)
  Sender: ALEXION PHARMACEUTICALS
  Company Number: US-AstraZeneca-CH-00802825A

PATIENT
  Age: 80 Year
  Sex: Male

DRUGS (1)
  1. OLAPARIB [Suspect]
     Active Substance: OLAPARIB
     Dosage: 150 MILLIGRAM, BID
     Route: 065

REACTIONS (4)
  - Refractory cancer [Unknown]
  - BRCA1 gene mutation [Unknown]
  - Chronic kidney disease [Unknown]
  - Product administration error [Unknown]
